FAERS Safety Report 25823143 (Version 1)
Quarter: 2025Q3

REPORT INFORMATION
  Report Type: Spontaneous
  Country: US (occurrence: US)
  Receive Date: 20250919
  Receipt Date: 20250919
  Transmission Date: 20251020
  Serious: No
  Sender: MYLAN
  Company Number: US-MYLANLABS-2025M1077606

PATIENT
  Sex: Female

DRUGS (16)
  1. XANAX [Suspect]
     Active Substance: ALPRAZOLAM
     Indication: Product used for unknown indication
  2. XANAX [Suspect]
     Active Substance: ALPRAZOLAM
     Route: 065
  3. XANAX [Suspect]
     Active Substance: ALPRAZOLAM
     Route: 065
  4. XANAX [Suspect]
     Active Substance: ALPRAZOLAM
  5. OZEMPIC [Suspect]
     Active Substance: SEMAGLUTIDE
     Indication: Type 2 diabetes mellitus
     Dosage: 2 MILLIGRAM, QW (ONCE WEEKLY)
     Route: 058
     Dates: start: 2023
  6. OZEMPIC [Suspect]
     Active Substance: SEMAGLUTIDE
     Dosage: 2 MILLIGRAM, QW (ONCE WEEKLY)
     Dates: start: 2023
  7. OZEMPIC [Suspect]
     Active Substance: SEMAGLUTIDE
     Dosage: 2 MILLIGRAM, QW (ONCE WEEKLY)
     Dates: start: 2023
  8. OZEMPIC [Suspect]
     Active Substance: SEMAGLUTIDE
     Dosage: 2 MILLIGRAM, QW (ONCE WEEKLY)
     Route: 058
     Dates: start: 2023
  9. OZEMPIC [Suspect]
     Active Substance: SEMAGLUTIDE
     Route: 058
  10. OZEMPIC [Suspect]
     Active Substance: SEMAGLUTIDE
  11. OZEMPIC [Suspect]
     Active Substance: SEMAGLUTIDE
  12. OZEMPIC [Suspect]
     Active Substance: SEMAGLUTIDE
     Route: 058
  13. HUMALOG MIX75/25 [Concomitant]
     Active Substance: INSULIN LISPRO
  14. HUMALOG MIX75/25 [Concomitant]
     Active Substance: INSULIN LISPRO
     Route: 065
  15. HUMALOG MIX75/25 [Concomitant]
     Active Substance: INSULIN LISPRO
     Route: 065
  16. HUMALOG MIX75/25 [Concomitant]
     Active Substance: INSULIN LISPRO

REACTIONS (3)
  - Diarrhoea [Recovered/Resolved]
  - Headache [Recovered/Resolved]
  - Dizziness [Recovered/Resolved]
